FAERS Safety Report 17113143 (Version 1)
Quarter: 2019Q4

REPORT INFORMATION
  Report Type: Spontaneous
  Country: CN (occurrence: CN)
  Receive Date: 20191204
  Receipt Date: 20191204
  Transmission Date: 20200122
  Serious: Yes (Other)
  Sender: FDA-Public Use
  Company Number: CN-BAXTER-2019BAX024172

PATIENT
  Age: 64 Year
  Sex: Male
  Weight: 65 kg

DRUGS (3)
  1. 20% MANNITOL INJECTION [Suspect]
     Active Substance: MANNITOL
     Indication: SPINAL OSTEOARTHRITIS
     Route: 041
     Dates: start: 20191122, end: 20191122
  2. 0.9% SODIUM CHLORIDE INJECTION [Suspect]
     Active Substance: SODIUM CHLORIDE
     Indication: MEDICATION DILUTION
     Dosage: 0.9% NS 100 ML + DEXAMETHASONE SODIUM PHOSPHATE INJECTION 10 MG
     Route: 041
     Dates: start: 20191122
  3. DEXAMETHASONE SODIUM PHOSPHATE. [Suspect]
     Active Substance: DEXAMETHASONE SODIUM PHOSPHATE
     Indication: PRODUCT USED FOR UNKNOWN INDICATION
     Dosage: 0.9% NS 100 ML + DEXAMETHASONE SODIUM PHOSPHATE INJECTION 10 MG
     Route: 041
     Dates: start: 20191122

REACTIONS (1)
  - Infusion site hypoaesthesia [Recovered/Resolved]

NARRATIVE: CASE EVENT DATE: 20191122
